FAERS Safety Report 16276657 (Version 1)
Quarter: 2019Q2

REPORT INFORMATION
  Report Type: Spontaneous
  Country: US (occurrence: US)
  Receive Date: 20190505
  Receipt Date: 20190505
  Transmission Date: 20190711
  Serious: Yes (Disabling)
  Sender: FDA-Public Use
  Company Number: None

PATIENT
  Age: 33 Year
  Sex: Male
  Weight: 81 kg

DRUGS (2)
  1. FINASTERIDE. [Suspect]
     Active Substance: FINASTERIDE
     Indication: ALOPECIA
     Dates: start: 20120630, end: 20130531
  2. MULTI VITAMIN [Concomitant]
     Active Substance: VITAMINS

REACTIONS (8)
  - Anhedonia [None]
  - Depression [None]
  - Erectile dysfunction [None]
  - Emotional poverty [None]
  - Cognitive disorder [None]
  - Feeling abnormal [None]
  - Dry skin [None]
  - Loss of libido [None]

NARRATIVE: CASE EVENT DATE: 20130603
